FAERS Safety Report 20557445 (Version 1)
Quarter: 2022Q1

REPORT INFORMATION
  Report Type: Spontaneous
  Country: US (occurrence: US)
  Receive Date: 20220307
  Receipt Date: 20220307
  Transmission Date: 20220423
  Serious: No
  Sender: FDA-Public Use
  Company Number: US-009507513-2203USA000398

PATIENT
  Sex: Female

DRUGS (3)
  1. KEYTRUDA [Suspect]
     Active Substance: PEMBROLIZUMAB
     Indication: Cervix carcinoma
     Dosage: 200 MG EVERY 3 WEEKS
     Route: 042
  2. CISPLATIN [Suspect]
     Active Substance: CISPLATIN
     Indication: Cervix carcinoma
     Dosage: 80 MG EVERY 3 WEEKS
     Route: 042
  3. CISPLATIN [Suspect]
     Active Substance: CISPLATIN
     Dosage: 80 MG EVERY 3 WEEKS
     Route: 042
     Dates: start: 20220218

REACTIONS (7)
  - Chest pain [Unknown]
  - Tension [Unknown]
  - Dyspnoea [Unknown]
  - Back pain [Unknown]
  - Nausea [Unknown]
  - Somnolence [Unknown]
  - Slow response to stimuli [Unknown]

NARRATIVE: CASE EVENT DATE: 20220218
